FAERS Safety Report 18681470 (Version 1)
Quarter: 2020Q4

REPORT INFORMATION
  Report Type: Spontaneous
  Country: US (occurrence: US)
  Receive Date: 20201229
  Receipt Date: 20201229
  Transmission Date: 20210114
  Serious: No
  Sender: FDA-Public Use
  Company Number: US-TEVA-2020-US-1862707

PATIENT
  Age: 67 Year
  Sex: Female

DRUGS (2)
  1. NEFAZODONE HCL [Suspect]
     Active Substance: NEFAZODONE HYDROCHLORIDE
     Route: 065
  2. BUSPAR [Suspect]
     Active Substance: BUSPIRONE HYDROCHLORIDE
     Route: 065

REACTIONS (14)
  - Withdrawal syndrome [Not Recovered/Not Resolved]
  - Illness [Not Recovered/Not Resolved]
  - Anxiety [Not Recovered/Not Resolved]
  - Gait disturbance [Recovered/Resolved]
  - Fall [Recovered/Resolved]
  - Blood pressure increased [Unknown]
  - Fear [Not Recovered/Not Resolved]
  - Daydreaming [Not Recovered/Not Resolved]
  - Formication [Not Recovered/Not Resolved]
  - Nervous system disorder [Unknown]
  - Discomfort [Not Recovered/Not Resolved]
  - Panic attack [Not Recovered/Not Resolved]
  - Dysphagia [Unknown]
  - Intentional product use issue [Unknown]
